FAERS Safety Report 9472525 (Version 1)
Quarter: 2013Q3

REPORT INFORMATION
  Report Type: Spontaneous
  Country: GB (occurrence: GB)
  Receive Date: 20130823
  Receipt Date: 20130823
  Transmission Date: 20140515
  Serious: Yes (Hospitalization, Other)
  Sender: FDA-Public Use
  Company Number: GB-PFIZER INC-2013241107

PATIENT
  Age: 77 Year
  Sex: Female

DRUGS (16)
  1. PREGABALIN [Suspect]
     Dosage: 25 MG, 2X/DAY
     Route: 048
     Dates: start: 20110118, end: 20110222
  2. PREGABALIN [Suspect]
     Dosage: 50 MG, 3X/DAY
     Route: 048
     Dates: start: 20110223
  3. VENLAFAXINE HCL [Suspect]
     Dosage: 75 MG, 2X/DAY
     Route: 048
  4. RAMIPRIL [Concomitant]
     Dosage: UNK
  5. ZOPICLONE [Concomitant]
     Dosage: UNK
  6. BENDROFLUMETHIAZIDE [Concomitant]
     Dosage: UNK
  7. ESOMEPRAZOLE [Concomitant]
     Dosage: UNK
  8. ISOSORBIDE MONONITRATE [Concomitant]
     Dosage: UNK
  9. DOMPERIDONE [Concomitant]
     Dosage: UNK
  10. CLOPIDOGREL [Concomitant]
     Dosage: UNK
  11. FUROSEMIDE [Concomitant]
     Dosage: UNK
  12. FERROUS SULPHATE [Concomitant]
     Dosage: UNK
  13. VITAMIN B COMPLEX [Concomitant]
     Dosage: UNK
  14. SIMVASTATIN [Concomitant]
     Dosage: UNK
  15. DIAZEPAM [Concomitant]
     Dosage: UNK
  16. CO-CODAMOL [Concomitant]
     Dosage: UNK

REACTIONS (3)
  - Dyskinesia [Not Recovered/Not Resolved]
  - Myoclonus [Recovered/Resolved]
  - Cerebral small vessel ischaemic disease [Unknown]
